FAERS Safety Report 7978310-0 (Version None)
Quarter: 2011Q4

REPORT INFORMATION
  Report Type: 
  Country: None (occurrence: None)
  Receive Date: 20111214
  Receipt Date: 20111201
  Transmission Date: 20120403
  Serious: Yes (Hospitalization)
  Sender: FDA-Public Use
  Company Number: US-BAYER-2011-036961

PATIENT
  Age: 22 Year
  Sex: Female
  Weight: 58.957 kg

DRUGS (5)
  1. ZOLOFT [Concomitant]
     Indication: DEPRESSION
  2. YASMIN [Suspect]
     Indication: CONTRACEPTION
     Dosage: UNK
     Dates: start: 20021201, end: 20060101
  3. YASMIN [Suspect]
     Indication: POLYCYSTIC OVARIES
  4. ZOLOFT [Concomitant]
     Indication: ANXIETY
     Dosage: 50 MG, QD
     Route: 048
     Dates: start: 20010101, end: 20100101
  5. DOXYCYCLINE [Concomitant]
     Dosage: 250 MG, QD

REACTIONS (8)
  - INJURY [None]
  - EMOTIONAL DISTRESS [None]
  - ANXIETY [None]
  - PULMONARY EMBOLISM [None]
  - GENERAL PHYSICAL HEALTH DETERIORATION [None]
  - MENTAL DISORDER [None]
  - SCAR [None]
  - PAIN [None]
